FAERS Safety Report 6283720-6 (Version None)
Quarter: 2009Q3

REPORT INFORMATION
  Report Type: 
  Country: None (occurrence: None)
  Receive Date: 20090724
  Receipt Date: 20090601
  Transmission Date: 20100115
  Serious: No
  Sender: FDA-Public Use
  Company Number: US-ALEXION-A200900442

PATIENT
  Sex: Male

DRUGS (9)
  1. SOLIRIS [Suspect]
     Indication: PAROXYSMAL NOCTURNAL HAEMOGLOBINURIA
     Dosage: 600 MG, UNK
     Route: 042
     Dates: start: 20090204, end: 20090225
  2. SOLIRIS [Suspect]
     Dosage: 900 MG, Q2W
     Route: 042
     Dates: start: 20090304
  3. PREDNISONE TAB [Concomitant]
     Dosage: 20 MG, QOD
  4. PREDNISONE TAB [Concomitant]
     Dosage: 2.5 MG, QD
  5. DANOKRIN [Concomitant]
     Dosage: 400 MG, QOD
  6. AZITHROMYCIN [Concomitant]
     Indication: ROSACEA
     Dosage: UNK
     Route: 048
  7. COUMADIN [Concomitant]
     Dosage: UNK
     Route: 048
  8. VITAMINS                           /90003601/ [Concomitant]
     Dosage: UNK
     Route: 048
  9. FOLIC ACID [Concomitant]
     Indication: PAROXYSMAL NOCTURNAL HAEMOGLOBINURIA
     Dosage: UNK
     Route: 048

REACTIONS (5)
  - DIARRHOEA [None]
  - FATIGUE [None]
  - HAEMOGLOBINURIA [None]
  - HAEMOLYSIS [None]
  - NASOPHARYNGITIS [None]
